FAERS Safety Report 22123886 (Version 1)
Quarter: 2023Q1

REPORT INFORMATION
  Report Type: Spontaneous
  Country: US (occurrence: None)
  Receive Date: 20230321
  Receipt Date: 20230321
  Transmission Date: 20230417
  Serious: Yes (Other)
  Sender: FDA-Public Use
  Company Number: None

PATIENT
  Age: 11 Month
  Sex: Male
  Weight: 12.6 kg

DRUGS (3)
  1. INFANTS PAIN AND FEVER [Suspect]
     Active Substance: ACETAMINOPHEN
     Indication: Teething
     Dosage: OTHER FREQUENCY : ONCE;?
     Route: 048
     Dates: start: 20230317, end: 20230317
  2. D drops [Concomitant]
  3. smarty pants brand probiotic [Concomitant]

REACTIONS (4)
  - Pyrexia [None]
  - Vomiting [None]
  - Hypersensitivity [None]
  - Rash [None]

NARRATIVE: CASE EVENT DATE: 20230318
